FAERS Safety Report 8720518 (Version 2)
Quarter: 2013Q4

REPORT INFORMATION
  Report Type: Spontaneous
  Country: US (occurrence: US)
  Receive Date: 20120813
  Receipt Date: 20131101
  Transmission Date: 20140711
  Serious: No
  Sender: FDA-Public Use
  Company Number: US-009507513-1207USA009520

PATIENT
  Sex: Male

DRUGS (1)
  1. MIRALAX [Suspect]
     Indication: CONSTIPATION
     Dosage: 17 G, ONCE
     Route: 048
     Dates: start: 20120615

REACTIONS (3)
  - Pain [Recovered/Resolved]
  - Muscle spasms [Recovered/Resolved]
  - Discomfort [Recovered/Resolved]
